FAERS Safety Report 8406885-6 (Version None)
Quarter: 2012Q2

REPORT INFORMATION
  Report Type: 
  Country: None (occurrence: None)
  Receive Date: 20120529
  Receipt Date: 20120507
  Transmission Date: 20120825
  Serious: Yes (Hospitalization)
  Sender: FDA-Public Use
  Company Number: TPA2011A05395

PATIENT
  Age: 60 Year
  Sex: Male

DRUGS (2)
  1. FEBURIC (FEBUXOSTAT) [Suspect]
     Indication: HYPERURICAEMIA
     Dosage: 20 MG (20 MG,1 IN 1 D) ORAL ; 40 MG (40 MG,1 IN 1 D) ORAL
     Route: 048
     Dates: start: 20110709, end: 20110809
  2. FEBURIC (FEBUXOSTAT) [Suspect]
     Indication: HYPERURICAEMIA
     Dosage: 20 MG (20 MG,1 IN 1 D) ORAL ; 40 MG (40 MG,1 IN 1 D) ORAL
     Route: 048
     Dates: start: 20110810, end: 20110824

REACTIONS (10)
  - BLOOD BILIRUBIN INCREASED [None]
  - GAMMA-GLUTAMYLTRANSFERASE INCREASED [None]
  - RENAL FUNCTION TEST ABNORMAL [None]
  - ARTHRALGIA [None]
  - BLOOD LACTATE DEHYDROGENASE INCREASED [None]
  - C-REACTIVE PROTEIN INCREASED [None]
  - DRUG-INDUCED LIVER INJURY [None]
  - MALAISE [None]
  - ASPARTATE AMINOTRANSFERASE INCREASED [None]
  - ALANINE AMINOTRANSFERASE INCREASED [None]
